FAERS Safety Report 8801710 (Version 1)
Quarter: 2012Q4

REPORT INFORMATION
  Report Type: 
  Country: US (occurrence: US)
  Receive Date: 20120921
  Receipt Date: 20120921
  Transmission Date: 20130627
  Serious: Yes (Other)
  Sender: FDA-Public Use
  Company Number: US-ELI_LILLY_AND_COMPANY-US201209003051

PATIENT
  Sex: Female

DRUGS (3)
  1. CYMBALTA [Suspect]
  2. GEODON [Concomitant]
  3. TOPAMAX [Concomitant]

REACTIONS (9)
  - Glaucoma [Unknown]
  - Hepatic enzyme increased [Unknown]
  - Gastrooesophageal reflux disease [Unknown]
  - Rhinorrhoea [Unknown]
  - Rhinitis [Unknown]
  - Somnolence [Unknown]
  - Abdominal discomfort [Unknown]
  - Migraine [Unknown]
  - Anxiety [Unknown]
